FAERS Safety Report 19487199 (Version 2)
Quarter: 2021Q3

REPORT INFORMATION
  Report Type: Spontaneous
  Country: US (occurrence: US)
  Receive Date: 20210702
  Receipt Date: 20210727
  Transmission Date: 20211014
  Serious: Yes (Other)
  Sender: FDA-Public Use
  Company Number: US-DRREDDYS-SPO/USA/21/0137199

PATIENT
  Age: 61 Year
  Sex: Female

DRUGS (3)
  1. SIROLIMUS. [Suspect]
     Active Substance: SIROLIMUS
     Indication: IMMUNOSUPPRESSION
  2. METHOTREXATE. [Concomitant]
     Active Substance: METHOTREXATE
     Indication: PROPHYLAXIS AGAINST GRAFT VERSUS HOST DISEASE
     Dates: start: 2017
  3. TACROLIMUS CAPSULES [Suspect]
     Active Substance: TACROLIMUS
     Indication: PROPHYLAXIS AGAINST GRAFT VERSUS HOST DISEASE
     Dates: start: 2017, end: 2017

REACTIONS (3)
  - Acute kidney injury [Recovered/Resolved]
  - Endothelial dysfunction [Unknown]
  - Proteinuria [Recovered/Resolved]

NARRATIVE: CASE EVENT DATE: 2017
